FAERS Safety Report 7762444-X (Version None)
Quarter: 2011Q3

REPORT INFORMATION
  Report Type: 
  Country: None (occurrence: None)
  Receive Date: 20110920
  Receipt Date: 20110909
  Transmission Date: 20111222
  Serious: Yes (Other)
  Sender: FDA-Public Use
  Company Number: US-BAYER-2011-084157

PATIENT
  Sex: Female

DRUGS (1)
  1. MIRENA [Suspect]
     Dosage: 30 MCG/24HR, CONT
     Dates: start: 20080101

REACTIONS (2)
  - UTERINE PAIN [None]
  - ACTIVITIES OF DAILY LIVING IMPAIRED [None]
